FAERS Safety Report 17342235 (Version 1)
Quarter: 2020Q1

REPORT INFORMATION
  Report Type: Spontaneous
  Country: US (occurrence: US)
  Receive Date: 20200114
  Receipt Date: 20200114
  Transmission Date: 20200409
  Serious: Yes (Hospitalization)
  Sender: FDA-Public Use
  Company Number: None

PATIENT
  Age: 38 Year
  Sex: Male

DRUGS (17)
  1. CREON [Concomitant]
     Active Substance: PANCRELIPASE AMYLASE\PANCRELIPASE LIPASE\PANCRELIPASE PROTEASE
  2. LINEZOLID. [Concomitant]
     Active Substance: LINEZOLID
  3. MYCOPHENOLAT [Concomitant]
     Active Substance: MYCOPHENOLATE MOFETIL
  4. AQUADEKS [Concomitant]
     Active Substance: MINERALS\VITAMINS
  5. LANTUS SOLOS [Concomitant]
  6. TACROLIMUS. [Concomitant]
     Active Substance: TACROLIMUS
  7. CEFTAZIDIME. [Concomitant]
     Active Substance: CEFTAZIDIME
  8. SOD CHLOR NEB 7% [Concomitant]
  9. HUMALOG KWIK [Concomitant]
  10. QVR REDIDAL AER [Concomitant]
  11. ASPIRIN. [Suspect]
     Active Substance: ASPIRIN
  12. CIPROFLOXACIN. [Concomitant]
     Active Substance: CIPROFLOXACIN
  13. OMEPRAZOLE. [Concomitant]
     Active Substance: OMEPRAZOLE
  14. SPIRIVA [Concomitant]
     Active Substance: TIOTROPIUM BROMIDE MONOHYDRATE
  15. TRIKAFTA [Suspect]
     Active Substance: ELEXACAFTOR\IVACAFTOR\TEZACAFTOR
     Indication: CYSTIC FIBROSIS
     Dosage: ?          OTHER DOSE:2TABS-1TAB;OTHER FREQUENCY:QAM - QPM;?
     Route: 048
  16. AZITHROMYCIN ANHYDROUS. [Concomitant]
     Active Substance: AZITHROMYCIN ANHYDROUS
  17. PULMOZYME [Concomitant]
     Active Substance: DORNASE ALFA

REACTIONS (1)
  - Hospitalisation [None]

NARRATIVE: CASE EVENT DATE: 20191223
